FAERS Safety Report 14021991 (Version 1)
Quarter: 2017Q3

REPORT INFORMATION
  Report Type: Spontaneous
  Country: US (occurrence: US)
  Receive Date: 20170928
  Receipt Date: 20170928
  Transmission Date: 20171128
  Serious: Yes (Hospitalization)
  Sender: FDA-Public Use
  Company Number: US-PFIZER INC-2017417006

PATIENT
  Age: 63 Year
  Sex: Female

DRUGS (16)
  1. CLIMARA [Suspect]
     Active Substance: ESTRADIOL
     Indication: HORMONE THERAPY
     Dosage: UNK
     Route: 062
     Dates: start: 19990125, end: 20010101
  2. RENOVA [Concomitant]
     Active Substance: TRETINOIN
     Dosage: UNK
  3. EVISTA [Concomitant]
     Active Substance: RALOXIFENE HYDROCHLORIDE
     Dosage: UNK
  4. BUSPIRONE [Concomitant]
     Active Substance: BUSPIRONE HYDROCHLORIDE
     Dosage: UNK
  5. PROMETRIUM [Suspect]
     Active Substance: PROGESTERONE
     Dosage: UNK
     Route: 048
     Dates: start: 20000208, end: 20010101
  6. NULYTELY [Concomitant]
     Active Substance: POLYETHYLENE GLYCOL 3350\POTASSIUM CHLORIDE\SODIUM BICARBONATE\SODIUM CHLORIDE
     Dosage: UNK
  7. TRIMOX [Concomitant]
     Active Substance: AMOXICILLIN
     Dosage: UNK
  8. HYDROCODONE BITARTRATE AND ACETAMINOPHEN [Concomitant]
     Active Substance: ACETAMINOPHEN\HYDROCODONE BITARTRATE
     Dosage: UNK
  9. CELEBREX [Concomitant]
     Active Substance: CELECOXIB
     Dosage: UNK
  10. VITAMIN E [Concomitant]
     Active Substance: .ALPHA.-TOCOPHEROL
     Dosage: UNK
  11. PREMPRO [Suspect]
     Active Substance: ESTROGENS, CONJUGATED\MEDROXYPROGESTERONE ACETATE
     Indication: HORMONE THERAPY
     Dosage: UNK
     Route: 048
     Dates: start: 20010112, end: 20020530
  12. PROMETRIUM [Suspect]
     Active Substance: PROGESTERONE
     Indication: HORMONE THERAPY
     Dosage: UNK
     Route: 048
     Dates: start: 19990309, end: 19991106
  13. CYCLOBENZAPRIN HCL [Concomitant]
     Active Substance: CYCLOBENZAPRINE HYDROCHLORIDE
     Dosage: UNK
  14. RELAFEN [Concomitant]
     Active Substance: NABUMETONE
     Dosage: UNK
  15. LAC-HYDRIN [Concomitant]
     Active Substance: AMMONIUM LACTATE
     Dosage: UNK
  16. CARISOPRODOL. [Concomitant]
     Active Substance: CARISOPRODOL
     Dosage: UNK

REACTIONS (4)
  - Ischaemic stroke [Unknown]
  - Depression [Unknown]
  - Metrorrhagia [Unknown]
  - Arteriosclerosis coronary artery [Unknown]
